FAERS Safety Report 26050837 (Version 1)
Quarter: 2025Q4

REPORT INFORMATION
  Report Type: Report from Study
  Country: US (occurrence: US)
  Receive Date: 20251116
  Receipt Date: 20251116
  Transmission Date: 20260117
  Serious: Yes (Other)
  Sender: ABBVIE
  Company Number: US-ABBVIE-6314211

PATIENT
  Sex: Female

DRUGS (1)
  1. RINVOQ [Suspect]
     Active Substance: UPADACITINIB
     Indication: Product used for unknown indication
     Route: 048
     Dates: start: 20240527

REACTIONS (12)
  - Back pain [Not Recovered/Not Resolved]
  - Bone pain [Not Recovered/Not Resolved]
  - Pain [Recovering/Resolving]
  - Viral pharyngitis [Recovering/Resolving]
  - Upper respiratory tract infection [Not Recovered/Not Resolved]
  - Choking [Unknown]
  - Cough [Unknown]
  - Dyspepsia [Unknown]
  - Throat irritation [Not Recovered/Not Resolved]
  - Dysphagia [Unknown]
  - Rheumatoid arthritis [Unknown]
  - Dental caries [Unknown]
